FAERS Safety Report 8237657-3 (Version None)
Quarter: 2012Q1

REPORT INFORMATION
  Report Type: 
  Country: None (occurrence: None)
  Receive Date: 20120327
  Receipt Date: 20120321
  Transmission Date: 20120608
  Serious: Yes (Hospitalization, Other)
  Sender: FDA-Public Use
  Company Number: CA-ABBOTT-12P-028-0901366-00

PATIENT
  Sex: Male
  Weight: 73 kg

DRUGS (10)
  1. LUPRON DEPOT [Suspect]
     Indication: PROSTATE CANCER
     Dates: start: 20070126
  2. DOCETAXEL [Suspect]
     Indication: PRODUCT USED FOR UNKNOWN INDICATION
     Route: 042
     Dates: start: 20110810, end: 20110810
  3. DOCETAXEL [Suspect]
     Route: 042
     Dates: start: 20110720, end: 20110720
  4. BISOPROLOL FUMARATE [Concomitant]
     Indication: HYPERTENSION
     Route: 048
     Dates: start: 20111001
  5. LUPRON DEPOT [Suspect]
     Dosage: INTERMITTENT LUPRON
     Dates: start: 19960501, end: 20010601
  6. ASPIRIN [Concomitant]
     Indication: PROPHYLAXIS
     Route: 048
     Dates: start: 20111001
  7. LUPRON DEPOT [Suspect]
     Dates: start: 20020301, end: 20061001
  8. LIPITOR [Concomitant]
     Indication: HYPERLIPIDAEMIA
     Route: 048
     Dates: start: 20040101
  9. MULTISURE FOR MEN [Concomitant]
     Indication: PROPHYLAXIS
     Route: 048
     Dates: start: 20061107
  10. LORAZEPAM [Concomitant]
     Indication: ANXIETY
     Route: 048
     Dates: start: 19860101

REACTIONS (42)
  - GASTROENTERITIS ESCHERICHIA COLI [None]
  - COLITIS ISCHAEMIC [None]
  - CUSHINGOID [None]
  - ALOPECIA [None]
  - DRUG HYPERSENSITIVITY [None]
  - CHEST PAIN [None]
  - ASTHENIA [None]
  - DIARRHOEA HAEMORRHAGIC [None]
  - RENAL FAILURE [None]
  - DEVICE OCCLUSION [None]
  - HYPERLIPIDAEMIA [None]
  - OXYGEN SATURATION DECREASED [None]
  - CARDIAC FAILURE CONGESTIVE [None]
  - TACHYCARDIA [None]
  - DEVICE RELATED INFECTION [None]
  - NEUTROPHIL COUNT INCREASED [None]
  - STAPHYLOCOCCAL INFECTION [None]
  - MALAISE [None]
  - IMMUNOSUPPRESSION [None]
  - COUGH [None]
  - STAPHYLOCOCCAL SEPSIS [None]
  - RASH PRURITIC [None]
  - RASH ERYTHEMATOUS [None]
  - PYREXIA [None]
  - FATIGUE [None]
  - HAEMATURIA [None]
  - GAIT DISTURBANCE [None]
  - DYSPNOEA [None]
  - HYPERCHOLESTEROLAEMIA [None]
  - PROSTATE CANCER METASTATIC [None]
  - CHILLS [None]
  - WHITE BLOOD CELL COUNT INCREASED [None]
  - ENDOCARDITIS BACTERIAL [None]
  - NEUTROPENIA [None]
  - OBSTRUCTIVE UROPATHY [None]
  - RASH MACULO-PAPULAR [None]
  - DYSGEUSIA [None]
  - URINARY TRACT INFECTION [None]
  - BLOOD CREATININE INCREASED [None]
  - COLON CANCER [None]
  - HYPOPHAGIA [None]
  - JOINT SWELLING [None]
